FAERS Safety Report 5023289-7 (Version None)
Quarter: 2006Q2

REPORT INFORMATION
  Report Type: 
  Country: None (occurrence: None)
  Receive Date: 20060605
  Receipt Date: 20060525
  Transmission Date: 20061013
  Serious: Yes (Other)
  Sender: FDA-Public Use
  Company Number: 2006069095

PATIENT
  Sex: Male

DRUGS (2)
  1. MYLANTA PLUS (MAGNESIUM HYDROXIDE, ALUMINIUM HYDROXIDE, SIMETHICONE) [Suspect]
     Indication: DYSPEPSIA
     Dosage: 1 TABLET AS NEEDED, ORAL
     Route: 048
     Dates: start: 20051101, end: 20060101
  2. MYLANTA PLUS (MAGNESIUM HYDROXIDE, ALUMINIUM HYDROXIDE, SIMETHICONE) [Suspect]
     Indication: DYSPEPSIA
     Dosage: LIQUID AMT AS NEEDED, ORAL
     Route: 048
     Dates: start: 20060101

REACTIONS (4)
  - ABDOMINAL PAIN UPPER [None]
  - DRUG INEFFECTIVE [None]
  - HIATUS HERNIA [None]
  - STOMACH DISCOMFORT [None]
